FAERS Safety Report 10086750 (Version 2)
Quarter: 2014Q2

REPORT INFORMATION
  Report Type: Spontaneous
  Country: GR (occurrence: GR)
  Receive Date: 20140418
  Receipt Date: 20140512
  Transmission Date: 20141212
  Serious: Yes (Hospitalization)
  Sender: FDA-Public Use
  Company Number: GR-ABBVIE-14P-066-1226017-00

PATIENT
  Age: 54 Year
  Sex: Female

DRUGS (3)
  1. HUMIRA [Suspect]
     Indication: ANKYLOSING SPONDYLITIS
     Route: 058
     Dates: start: 20110725, end: 20140301
  2. ZEFFIX [Concomitant]
     Indication: HEPATITIS B SURFACE ANTIBODY POSITIVE
     Dates: start: 20110707
  3. CALCIUM + VITAMIN D [Concomitant]
     Indication: OSTEOPENIA

REACTIONS (4)
  - Pleurisy [Recovering/Resolving]
  - Lupus-like syndrome [Recovering/Resolving]
  - Pyrexia [Recovered/Resolved]
  - Pericarditis [Recovered/Resolved]
